FAERS Safety Report 25073632 (Version 1)
Quarter: 2025Q1

REPORT INFORMATION
  Report Type: Spontaneous
  Country: US (occurrence: None)
  Receive Date: 20250312
  Receipt Date: 20250312
  Transmission Date: 20250409
  Serious: Yes (Hospitalization)
  Sender: FDA-CTU
  Company Number: None

PATIENT
  Age: 85 Year
  Sex: Male
  Weight: 78.3 kg

DRUGS (2)
  1. OBINUTUZUMAB [Suspect]
     Active Substance: OBINUTUZUMAB
     Route: 042
     Dates: start: 20250108, end: 20250108
  2. VENETOCLAX [Concomitant]
     Active Substance: VENETOCLAX
     Dates: start: 20250107

REACTIONS (5)
  - Infusion related reaction [None]
  - Tremor [None]
  - Back pain [None]
  - Tachycardia [None]
  - Therapy interrupted [None]

NARRATIVE: CASE EVENT DATE: 20250108
